FAERS Safety Report 15192969 (Version 1)
Quarter: 2018Q3

REPORT INFORMATION
  Report Type: Spontaneous
  Country: CA (occurrence: CA)
  Receive Date: 20180725
  Receipt Date: 20180725
  Transmission Date: 20181010
  Serious: Yes (Hospitalization)
  Sender: FDA-Public Use
  Company Number: CA-VISTAPHARM, INC.-VER201807-000763

PATIENT
  Age: 56 Year
  Sex: Female

DRUGS (22)
  1. VALPROIC ACID. [Suspect]
     Active Substance: VALPROIC ACID
     Indication: BIPOLAR DISORDER
     Dosage: 500 MG TWICE DAILY
  2. FORMOTEROL [Concomitant]
     Active Substance: FORMOTEROL
     Indication: PRODUCT USED FOR UNKNOWN INDICATION
     Dosage: 12 MICROGRAM TWICE DAILY (INHALER)
  3. THIAMINE [Concomitant]
     Active Substance: THIAMINE
     Dosage: 100 MG 3 TIMES DAILY (FOR ANOTHER 7 DAYS)
     Route: 048
  4. LEVOCARNITINE. [Concomitant]
     Active Substance: LEVOCARNITINE
     Dosage: 660 MG 3 TIMES DAILY
     Route: 048
  5. HALOPERIDOL. [Concomitant]
     Active Substance: HALOPERIDOL
     Indication: PRODUCT USED FOR UNKNOWN INDICATION
     Dosage: 4 MG ONCE DAILY
  6. ESOMEPRAZOLE [Concomitant]
     Active Substance: ESOMEPRAZOLE
     Indication: PRODUCT USED FOR UNKNOWN INDICATION
     Dosage: 40 MG ONCE A DAILY
  7. OXYCODONE [Concomitant]
     Active Substance: OXYCODONE
     Indication: PRODUCT USED FOR UNKNOWN INDICATION
     Dosage: 10 MG EVERY 6 HOURS IF NEEDED
  8. PROCYCLIDINE [Concomitant]
     Active Substance: PROCYCLIDINE
     Indication: PRODUCT USED FOR UNKNOWN INDICATION
     Dosage: 2.5 MG TWICE DAILY
  9. MAGNESIUM GLUCOHEPTONATE [Concomitant]
     Indication: PRODUCT USED FOR UNKNOWN INDICATION
     Dosage: 3000 MG 3 TIMES DAILY
  10. OESTROGEN [Concomitant]
     Indication: PRODUCT USED FOR UNKNOWN INDICATION
     Dosage: 50 MICROG/D, PATCH
  11. LEVOTHYROXINE. [Concomitant]
     Active Substance: LEVOTHYROXINE
     Indication: PRODUCT USED FOR UNKNOWN INDICATION
     Dosage: 0.112 MG ONCE DAILY
  12. LOXAPINE. [Concomitant]
     Active Substance: LOXAPINE
     Indication: PRODUCT USED FOR UNKNOWN INDICATION
     Dosage: 10 MG  ONCE DAILY
  13. PROGESTIN [Concomitant]
     Active Substance: PROGESTERONE
     Indication: PRODUCT USED FOR UNKNOWN INDICATION
     Dosage: 2.5 MG ONCE DAILY
  14. VANCOMYCIN [Concomitant]
     Active Substance: VANCOMYCIN
     Indication: POUCHITIS
     Dosage: UNKNOWN
  15. MEROPENEM. [Concomitant]
     Active Substance: MEROPENEM
     Dosage: UNKNOWN
  16. LEVOCARNITINE. [Concomitant]
     Active Substance: LEVOCARNITINE
     Indication: PRODUCT USED FOR UNKNOWN INDICATION
     Route: 040
  17. LEVOCARNITINE. [Concomitant]
     Active Substance: LEVOCARNITINE
     Dosage: AT 50 MG/H (INTRAVENOUS INFUSION)
  18. ADALIMUMAB [Concomitant]
     Active Substance: ADALIMUMAB
     Indication: PRODUCT USED FOR UNKNOWN INDICATION
     Dosage: EVERY OTHER WEEK
  19. IRON SACCHAROSE [Concomitant]
     Indication: PRODUCT USED FOR UNKNOWN INDICATION
     Dosage: 100 MG ONCE A MONTH
     Route: 030
  20. ACETAMINOPHEN. [Concomitant]
     Active Substance: ACETAMINOPHEN
     Indication: PRODUCT USED FOR UNKNOWN INDICATION
     Dosage: 500 TO 1000 MG EVERY 6 HOURS IF NEEDED
  21. THIAMINE [Concomitant]
     Active Substance: THIAMINE
     Indication: PRODUCT USED FOR UNKNOWN INDICATION
     Dosage: 500 MG 3 TIMES DAILY (ON DAY 2 FOR 7 DAYS)
     Route: 042
  22. PREDNISONE. [Concomitant]
     Active Substance: PREDNISONE
     Dosage: 10 MG ONCE DAILY

REACTIONS (2)
  - Hyperlactacidaemia [Unknown]
  - Carnitine deficiency [Unknown]
